FAERS Safety Report 6706823-8 (Version None)
Quarter: 2010Q2

REPORT INFORMATION
  Report Type: 
  Country: None (occurrence: None)
  Receive Date: 20100503
  Receipt Date: 20100422
  Transmission Date: 20101027
  Serious: Yes (Other)
  Sender: FDA-Public Use
  Company Number: US-BAYER-201020527NA

PATIENT
  Sex: Female

DRUGS (2)
  1. YAZ [Suspect]
     Indication: DRUG USE FOR UNKNOWN INDICATION
     Dates: start: 20010101, end: 20100228
  2. YASMIN [Suspect]
     Indication: DRUG USE FOR UNKNOWN INDICATION
     Dates: start: 20010101, end: 20100228

REACTIONS (5)
  - GALLBLADDER DISORDER [None]
  - HEART VALVE INCOMPETENCE [None]
  - PALPITATIONS [None]
  - THYROID DISORDER [None]
  - UTERINE LEIOMYOMA [None]
